FAERS Safety Report 17040064 (Version 2)
Quarter: 2020Q1

REPORT INFORMATION
  Report Type: Spontaneous
  Country: US (occurrence: US)
  Receive Date: 20191116
  Receipt Date: 20200306
  Transmission Date: 20200409
  Serious: No
  Sender: FDA-Public Use
  Company Number: US-TORRENT-00007446

PATIENT
  Age: 75 Year
  Sex: Female
  Weight: 68 kg

DRUGS (5)
  1. GLUCOSAMINE [Concomitant]
     Active Substance: GLUCOSAMINE
     Indication: BONE DISORDER
     Dosage: UNKNOWN
  2. LOSARTAN. [Suspect]
     Active Substance: LOSARTAN
     Indication: ARTERIOSCLEROSIS
     Dosage: HALF TABLET, IN MORNING AND ONCE IN NIGHT
     Route: 048
  3. LOSARTAN. [Suspect]
     Active Substance: LOSARTAN
     Indication: ARTERIOSCLEROSIS
     Dosage: UNKNOWN
     Route: 048
     Dates: start: 2016
  4. ROSUVASTATIN. [Concomitant]
     Active Substance: ROSUVASTATIN
     Indication: BLOOD CHOLESTEROL
     Dosage: 5 MG, 1 TABLET EVERY OTHER DAY
  5. LOSARTAN. [Suspect]
     Active Substance: LOSARTAN
     Indication: ARTERIOSCLEROSIS
     Dosage: UNKNOWN
     Route: 048
     Dates: start: 20170419

REACTIONS (4)
  - Off label use [Unknown]
  - Dizziness [Recovering/Resolving]
  - Wrong technique in product usage process [Unknown]
  - Product prescribing error [Unknown]
